FAERS Safety Report 14141612 (Version 1)
Quarter: 2017Q4

REPORT INFORMATION
  Report Type: Spontaneous
  Country: US (occurrence: US)
  Receive Date: 20171029
  Receipt Date: 20171029
  Transmission Date: 20180321
  Serious: Yes (Disabling)
  Sender: FDA-Public Use
  Company Number: None

PATIENT
  Sex: Female
  Weight: 110.25 kg

DRUGS (5)
  1. XELJANZ [Concomitant]
     Active Substance: TOFACITINIB CITRATE
  2. METFORMIN [Concomitant]
     Active Substance: METFORMIN HYDROCHLORIDE
  3. METHOTREXATE. [Suspect]
     Active Substance: METHOTREXATE
     Indication: RHEUMATOID ARTHRITIS
     Dosage: ?          QUANTITY:9 TABLET(S);OTHER FREQUENCY:PER WEEK;?
     Route: 048
     Dates: start: 20160711
  4. WOMAN^S ONE-A-DAY [Concomitant]
  5. IRON SUPPLEMENT [Concomitant]
     Active Substance: IRON

REACTIONS (1)
  - Eustachian tube patulous [None]

NARRATIVE: CASE EVENT DATE: 20160801
